FAERS Safety Report 19725689 (Version 1)
Quarter: 2021Q3

REPORT INFORMATION
  Report Type: Spontaneous
  Country: US (occurrence: US)
  Receive Date: 20210819
  Receipt Date: 20210819
  Transmission Date: 20211014
  Serious: Yes (Hospitalization)
  Sender: FDA-Public Use
  Company Number: None

PATIENT
  Sex: Male
  Weight: 108.5 kg

DRUGS (3)
  1. METHOTREXATE. [Suspect]
     Active Substance: METHOTREXATE
  2. ONCASPAR [Concomitant]
     Active Substance: PEGASPARGASE
  3. VINCRISTINE SULFATE. [Concomitant]
     Active Substance: VINCRISTINE SULFATE

REACTIONS (7)
  - Product dose omission issue [None]
  - Hyperglycaemia [None]
  - Lethargy [None]
  - Renal disorder [None]
  - Fatigue [None]
  - Drug monitoring procedure not performed [None]
  - Electrolyte imbalance [None]

NARRATIVE: CASE EVENT DATE: 20210814
